FAERS Safety Report 5188566-8 (Version None)
Quarter: 2006Q4

REPORT INFORMATION
  Report Type: 
  Country: None (occurrence: None)
  Receive Date: 20061221
  Receipt Date: 20061211
  Transmission Date: 20070319
  Serious: Yes (Hospitalization)
  Sender: FDA-Public Use
  Company Number: FR-JNJFOC-20061105270

PATIENT
  Age: 68 Year
  Sex: Female

DRUGS (4)
  1. TOPALGIC [Suspect]
     Indication: DRUG USE FOR UNKNOWN INDICATION
     Route: 048
  2. SPASFON [Concomitant]
     Route: 065
     Dates: start: 20060916, end: 20061010
  3. DIGOXIN [Concomitant]
     Route: 065
  4. ACUPAN [Concomitant]
     Route: 065

REACTIONS (3)
  - EOSINOPHILIA [None]
  - HEPATIC ENZYME INCREASED [None]
  - RESPIRATORY DISORDER [None]
